FAERS Safety Report 5846200-5 (Version None)
Quarter: 2008Q3

REPORT INFORMATION
  Report Type: 
  Country: None (occurrence: None)
  Receive Date: 20080813
  Receipt Date: 20080729
  Transmission Date: 20090109
  Serious: Yes (Other)
  Sender: FDA-Public Use
  Company Number: A-US2008-21434

PATIENT
  Age: 18 Year
  Sex: Female
  Weight: 49 kg

DRUGS (8)
  1. TRACLEER [Suspect]
     Indication: PULMONARY HYPERTENSION
     Dosage: ORAL
     Route: 048
     Dates: start: 20080108
  2. VENTAVIS [Concomitant]
  3. CIALIS [Concomitant]
  4. LASIX [Concomitant]
  5. DIGOXIN [Concomitant]
  6. ALDACTONE [Concomitant]
  7. SINGULAIR [Concomitant]
  8. COUMADIN [Concomitant]

REACTIONS (5)
  - ALANINE AMINOTRANSFERASE INCREASED [None]
  - ASPARTATE AMINOTRANSFERASE INCREASED [None]
  - CONDITION AGGRAVATED [None]
  - LIVER FUNCTION TEST ABNORMAL [None]
  - PULMONARY HYPERTENSION [None]
